FAERS Safety Report 4752115-6 (Version None)
Quarter: 2005Q3

REPORT INFORMATION
  Report Type: 
  Country: None (occurrence: None)
  Receive Date: 20050825
  Receipt Date: 20050817
  Transmission Date: 20060218
  Serious: Yes (Other)
  Sender: FDA-Public Use
  Company Number: US-JNJFOC-20050804338

PATIENT
  Sex: Female
  Weight: 48.99 kg

DRUGS (4)
  1. REMICADE [Suspect]
     Dosage: FIRST DOSE RECEIVED IN 1998
     Route: 042
  2. REMICADE [Suspect]
     Indication: CROHN'S DISEASE
     Route: 042
  3. 6-MP [Concomitant]
     Dosage: GREATER THAN 6 MONTHS
  4. PREDNISONE TAB [Concomitant]
     Dosage: GREATER THAN 6 MONTHS

REACTIONS (6)
  - CONFUSIONAL STATE [None]
  - CONVULSION [None]
  - DYSARTHRIA [None]
  - HYPOAESTHESIA [None]
  - LETHARGY [None]
  - PARAESTHESIA [None]
